FAERS Safety Report 11513490 (Version 1)
Quarter: 2015Q3

REPORT INFORMATION
  Report Type: Spontaneous
  Country: US (occurrence: None)
  Receive Date: 20150915
  Receipt Date: 20150915
  Transmission Date: 20151125
  Serious: No
  Sender: FDA-Public Use
  Company Number: None

PATIENT
  Age: 41 Year
  Sex: Female
  Weight: 88.45 kg

DRUGS (4)
  1. MICROGESTIN [Concomitant]
     Active Substance: ETHINYL ESTRADIOL\NORETHINDRONE ACETATE
  2. CALCIUM W/D3 [Concomitant]
  3. MULTIVITAMIN [Concomitant]
     Active Substance: VITAMINS
  4. QNASL [Suspect]
     Active Substance: BECLOMETHASONE DIPROPIONATE
     Indication: RHINITIS ALLERGIC
     Dosage: 2 SPRAYS PER NOSTRIL
     Route: 045
     Dates: start: 20150911, end: 20150914

REACTIONS (4)
  - Palpitations [None]
  - Visual impairment [None]
  - Initial insomnia [None]
  - Headache [None]

NARRATIVE: CASE EVENT DATE: 20150914
